FAERS Safety Report 15197031 (Version 1)
Quarter: 2018Q3

REPORT INFORMATION
  Report Type: Spontaneous
  Country: IE (occurrence: IE)
  Receive Date: 20180725
  Receipt Date: 20180725
  Transmission Date: 20181010
  Serious: Yes (Life-Threatening, Hospitalization, Other)
  Sender: FDA-Public Use
  Company Number: IE-BIOVITRUM-2018BV000037

PATIENT
  Age: 79 Year
  Sex: Male
  Weight: 80 kg

DRUGS (1)
  1. ALPROLIX [Suspect]
     Active Substance: EFTRENONACOG ALFA
     Indication: FACTOR IX DEFICIENCY
     Dosage: SWITCHED TO APLROLIX IN AUG/SEP 2017. HAD 22 DOSES
     Route: 042
     Dates: start: 20170820, end: 20180125

REACTIONS (5)
  - Contusion [Unknown]
  - Factor IX inhibition [Not Recovered/Not Resolved]
  - Swelling [Unknown]
  - Haemorrhage [Not Recovered/Not Resolved]
  - Transfusion [Unknown]

NARRATIVE: CASE EVENT DATE: 201801
